FAERS Safety Report 6003135-5 (Version None)
Quarter: 2008Q4

REPORT INFORMATION
  Report Type: 
  Country: None (occurrence: None)
  Receive Date: 20081212
  Receipt Date: 20081212
  Transmission Date: 20090506
  Serious: Yes (Other)
  Sender: FDA-Public Use
  Company Number: None

PATIENT
  Age: 55 Year
  Sex: Female
  Weight: 58.3 kg

DRUGS (17)
  1. PROMETHAZINE [Suspect]
     Indication: NAUSEA
     Dosage: 25 MG AS NEEDED IV
     Route: 042
     Dates: start: 20080719, end: 20080719
  2. PANTOPRAZOLE [Concomitant]
  3. MONTELUKAST SODIUM [Concomitant]
  4. ALENDRONATE SODIUM [Concomitant]
  5. OXYCODONE HCL [Concomitant]
  6. SPIRONOLACTONE [Concomitant]
  7. AMOXICILLIN [Concomitant]
  8. NORTRIPTYLINE [Concomitant]
  9. GABAPENTIN [Concomitant]
  10. CLONAZEPAM [Concomitant]
  11. ALBUTEROL [Concomitant]
  12. FLUTICASONE/SALMETEROL [Concomitant]
  13. ALBUTEROL SULFATE AND IPRATROPIUM BROMIDE [Concomitant]
  14. TIOTROPIUM [Concomitant]
  15. RIBAVIRON [Concomitant]
  16. PEGINTERFERON ALFA-2B [Concomitant]
  17. CALCIUM WITH VITAMIN D [Concomitant]

REACTIONS (2)
  - CONFUSIONAL STATE [None]
  - CYANOSIS [None]
